FAERS Safety Report 7787501-3 (Version None)
Quarter: 2011Q3

REPORT INFORMATION
  Report Type: 
  Country: None (occurrence: None)
  Receive Date: 20110929
  Receipt Date: 20110919
  Transmission Date: 20111222
  Serious: No
  Sender: FDA-Public Use
  Company Number: US-B.I. PHARMACEUTICALS,INC./RIDGEFIELD-2011-BP-22502BP

PATIENT
  Sex: Male

DRUGS (8)
  1. BENICAR HCT [Concomitant]
     Indication: HYPERTENSION
     Route: 048
     Dates: start: 20100101
  2. LUMIGAN [Concomitant]
     Indication: GLAUCOMA
     Route: 047
     Dates: start: 20100101
  3. ASPIRIN [Suspect]
     Indication: CARDIAC DISORDER
     Dosage: 81 MG
     Route: 048
     Dates: start: 20010101
  4. TIMOLOL MALEATE [Concomitant]
     Indication: GLAUCOMA
     Route: 047
     Dates: start: 20100101
  5. PROPAFENONE HCL [Concomitant]
     Indication: ATRIAL FIBRILLATION
     Dosage: 600 MG
     Route: 048
     Dates: start: 20080101
  6. AZOPT [Concomitant]
     Indication: GLAUCOMA
     Route: 047
     Dates: start: 20100101
  7. PRADAXA [Suspect]
     Indication: ATRIAL FIBRILLATION
     Dosage: 150 MG
     Route: 048
     Dates: start: 20110701, end: 20110901
  8. LIPITOR [Concomitant]
     Indication: BLOOD CHOLESTEROL INCREASED
     Dosage: 10 MG
     Route: 048
     Dates: start: 20090101

REACTIONS (2)
  - FLATULENCE [None]
  - ERUCTATION [None]
